FAERS Safety Report 6721298-0 (Version None)
Quarter: 2010Q2

REPORT INFORMATION
  Report Type: 
  Country: None (occurrence: None)
  Receive Date: 20100512
  Receipt Date: 20100429
  Transmission Date: 20101027
  Serious: Yes (Hospitalization)
  Sender: FDA-Public Use
  Company Number: PHHY2010US27731

PATIENT
  Sex: Female
  Weight: 67.3 kg

DRUGS (7)
  1. DEFERASIROX [Suspect]
     Indication: LYMPHOMA
     Dosage: 1500 MG DAILY
     Route: 048
     Dates: start: 20100416
  2. AUGMENTIN '125' [Concomitant]
  3. DEXAMETHASONE [Concomitant]
  4. PROTONIX [Concomitant]
  5. TYLENOL-500 [Concomitant]
  6. ACYCLOVIR [Concomitant]
  7. GUAIFENESIN [Concomitant]

REACTIONS (3)
  - ABDOMINAL DISTENSION [None]
  - DIARRHOEA [None]
  - NAUSEA [None]
